FAERS Safety Report 8334128-0 (Version None)
Quarter: 2012Q2

REPORT INFORMATION
  Report Type: 
  Country: None (occurrence: None)
  Receive Date: 20120503
  Receipt Date: 20120426
  Transmission Date: 20120825
  Serious: Yes (Other)
  Sender: FDA-Public Use
  Company Number: US-PFIZER INC-2012087990

PATIENT
  Sex: Female

DRUGS (2)
  1. NEURONTIN [Suspect]
     Dosage: 300 MG, UNK
     Route: 048
  2. NEURONTIN [Suspect]
     Dosage: 100 MG, UNK
     Route: 048

REACTIONS (7)
  - HYPERSOMNIA [None]
  - NAUSEA [None]
  - CARDIOMEGALY [None]
  - HYPERTENSION [None]
  - VISION BLURRED [None]
  - ATRIAL FIBRILLATION [None]
  - DIZZINESS [None]
